FAERS Safety Report 10031499 (Version 1)
Quarter: 2014Q1

REPORT INFORMATION
  Report Type: Spontaneous
  Country: AU (occurrence: AU)
  Receive Date: 20140324
  Receipt Date: 20140324
  Transmission Date: 20141002
  Serious: Yes (Other)
  Sender: FDA-Public Use
  Company Number: AU-AMGEN-AUSSP2014019293

PATIENT
  Age: 74 Year
  Sex: Male

DRUGS (1)
  1. PROLIA [Suspect]
     Indication: PRODUCT USED FOR UNKNOWN INDICATION
     Dosage: UNK
     Dates: start: 20131113, end: 20131113

REACTIONS (7)
  - Pharyngeal oedema [Recovering/Resolving]
  - Swollen tongue [Recovering/Resolving]
  - Lethargy [Recovering/Resolving]
  - Myalgia [Recovering/Resolving]
  - Influenza like illness [Recovering/Resolving]
  - Dyspnoea [Recovering/Resolving]
  - Paraesthesia oral [Recovering/Resolving]
